FAERS Safety Report 8264334-5 (Version None)
Quarter: 2012Q2

REPORT INFORMATION
  Report Type: 
  Country: None (occurrence: None)
  Receive Date: 20120406
  Receipt Date: 20120402
  Transmission Date: 20120825
  Serious: No
  Sender: FDA-Public Use
  Company Number: US-PFIZER INC-2012083286

PATIENT
  Sex: Male
  Weight: 81.633 kg

DRUGS (1)
  1. IBUPROFEN (ADVIL) [Suspect]
     Indication: BACK PAIN
     Dosage: 200 MG, 2X/DAY
     Dates: end: 20120301

REACTIONS (1)
  - BLOOD URINE PRESENT [None]
